FAERS Safety Report 15712801 (Version 1)
Quarter: 2018Q4

REPORT INFORMATION
  Report Type: Spontaneous
  Country: US (occurrence: US)
  Receive Date: 20181206
  Receipt Date: 20181206
  Transmission Date: 20190205
  Serious: Yes (Hospitalization)
  Sender: FDA-Public Use
  Company Number: None

PATIENT
  Age: 29 Year

DRUGS (32)
  1. TOBI [Suspect]
     Active Substance: TOBRAMYCIN
     Indication: CYSTIC FIBROSIS
     Dosage: FREQUENCY: Q12H 14 D ON 14 D OFF
     Route: 055
     Dates: start: 20180322
  2. HIZENTRA [Concomitant]
     Active Substance: HUMAN IMMUNOGLOBULIN G
  3. QVAR [Concomitant]
     Active Substance: BECLOMETHASONE DIPROPIONATE
  4. CARTNITOR [Concomitant]
  5. DHA [Concomitant]
     Active Substance: DIETARY SUPPLEMENT
  6. POLYSACCHARI [Concomitant]
  7. METFORMIN [Concomitant]
     Active Substance: METFORMIN HYDROCHLORIDE
  8. METHYLCOBALA [Concomitant]
  9. VITAMIN D3 [Concomitant]
     Active Substance: CHOLECALCIFEROL
  10. CRANBERRY. [Concomitant]
     Active Substance: CRANBERRY
  11. SODIUM CHLORIDE. [Concomitant]
     Active Substance: SODIUM CHLORIDE
  12. XOPENEX HFA [Concomitant]
     Active Substance: LEVALBUTEROL TARTRATE
  13. ZINC CHLORID [Concomitant]
  14. FOLIC ACID. [Concomitant]
     Active Substance: FOLIC ACID
  15. PREVACID [Concomitant]
     Active Substance: LANSOPRAZOLE
  16. PULMOZYME [Concomitant]
     Active Substance: DORNASE ALFA
  17. SPIRONOLACTONE. [Concomitant]
     Active Substance: SPIRONOLACTONE
  18. ULTRA B-100 [Concomitant]
  19. ASTRAGALUS [Concomitant]
  20. LECITHIN [Concomitant]
     Active Substance: LECITHIN
  21. NYSTATIN. [Concomitant]
     Active Substance: NYSTATIN
  22. OSTERA [Concomitant]
  23. TORSEMIDE. [Concomitant]
     Active Substance: TORSEMIDE
  24. GLUTATHONE [Concomitant]
  25. MICROLIPID [Concomitant]
  26. NADH [Concomitant]
     Active Substance: NADH
  27. PULMOZYME [Suspect]
     Active Substance: DORNASE ALFA
     Indication: CYSTIC FIBROSIS
     Route: 055
     Dates: start: 20180322
  28. BENADRYL [Concomitant]
     Active Substance: DIPHENHYDRAMINE HYDROCHLORIDE
  29. LACTULOSE. [Concomitant]
     Active Substance: LACTULOSE
  30. LEVOTHYROXIN [Concomitant]
     Active Substance: LEVOTHYROXINE
  31. NUTRISOURCE [Concomitant]
  32. PROBIOTIC [Concomitant]
     Active Substance: PROBIOTICS NOS

REACTIONS (1)
  - Pneumonia [None]
